FAERS Safety Report 14551309 (Version 1)
Quarter: 2018Q1

REPORT INFORMATION
  Report Type: Spontaneous
  Country: IT (occurrence: IT)
  Receive Date: 20180220
  Receipt Date: 20180220
  Transmission Date: 20180509
  Serious: Yes (Other)
  Sender: FDA-Public Use
  Company Number: IT-WEST-WARD PHARMACEUTICALS CORP.-IT-H14001-18-01110

PATIENT
  Age: 53 Year
  Sex: Female
  Weight: 160 kg

DRUGS (2)
  1. EPIRUBICIN HYDROCHLORIDE. [Suspect]
     Active Substance: EPIRUBICIN HYDROCHLORIDE
     Indication: METAPLASTIC BREAST CARCINOMA
     Route: 042
     Dates: start: 20170228
  2. ENDOXAN BAXTER [Suspect]
     Active Substance: CYCLOPHOSPHAMIDE
     Indication: METAPLASTIC BREAST CARCINOMA
     Route: 042
     Dates: start: 20170228

REACTIONS (8)
  - Odynophagia [Recovering/Resolving]
  - Malaise [Unknown]
  - Abdominal pain upper [Recovering/Resolving]
  - Headache [Recovering/Resolving]
  - Drug intolerance [Unknown]
  - Neutropenia [Recovering/Resolving]
  - Mucosal inflammation [Recovering/Resolving]
  - Nausea [Recovering/Resolving]
